FAERS Safety Report 14763810 (Version 2)
Quarter: 2018Q2

REPORT INFORMATION
  Report Type: Spontaneous
  Country: DE (occurrence: DE)
  Receive Date: 20180416
  Receipt Date: 20180424
  Transmission Date: 20180711
  Serious: Yes (Life-Threatening)
  Sender: FDA-Public Use
  Company Number: DE-ROCHE-2107558

PATIENT
  Age: 65 Year
  Sex: Female
  Weight: 56 kg

DRUGS (3)
  1. MABTHERA [Suspect]
     Active Substance: RITUXIMAB
     Indication: RHEUMATOID ARTHRITIS
     Route: 042
     Dates: start: 20161026
  2. MABTHERA [Suspect]
     Active Substance: RITUXIMAB
     Indication: RHEUMATOID ARTHRITIS
     Route: 042
     Dates: start: 20161110
  3. MABTHERA [Suspect]
     Active Substance: RITUXIMAB
     Indication: RHEUMATOID ARTHRITIS
     Route: 042
     Dates: start: 20170510

REACTIONS (3)
  - Progressive multifocal leukoencephalopathy [Recovered/Resolved with Sequelae]
  - Hemianopia homonymous [Recovered/Resolved with Sequelae]
  - Cognitive disorder [Unknown]

NARRATIVE: CASE EVENT DATE: 201709
